FAERS Safety Report 20963793 (Version 1)
Quarter: 2022Q2

REPORT INFORMATION
  Report Type: Spontaneous
  Country: US (occurrence: US)
  Receive Date: 20220615
  Receipt Date: 20220615
  Transmission Date: 20220720
  Serious: No
  Sender: FDA-Public Use
  Company Number: US-BRISTOL-MYERS SQUIBB COMPANY-2022-045402

PATIENT
  Age: 82 Year
  Sex: Male

DRUGS (1)
  1. REBLOZYL [Suspect]
     Active Substance: LUSPATERCEPT-AAMT
     Indication: Product used for unknown indication
     Dosage: FREQUENCY:  ^INJECT 85 MG SC EVERY 3 WEEKS^?STRENGTH AND PRESENTATION OF THE AE : ^75  25 MG
     Route: 058

REACTIONS (1)
  - Weight decreased [Unknown]
